FAERS Safety Report 9741065 (Version 1)
Quarter: 2013Q4

REPORT INFORMATION
  Report Type: Spontaneous
  Country: US (occurrence: US)
  Receive Date: 20131209
  Receipt Date: 20131209
  Transmission Date: 20140711
  Serious: Yes (Other)
  Sender: FDA-Public Use
  Company Number: US-ALLERGAN-1318903US

PATIENT
  Age: 57 Year
  Sex: Female

DRUGS (6)
  1. LATISSE 0.03% [Suspect]
     Indication: HYPOTRICHOSIS
     Dosage: UNK
     Route: 061
     Dates: start: 2010
  2. LATISSE 0.03% [Suspect]
     Indication: HAIR GROWTH ABNORMAL
  3. XANAX [Concomitant]
     Indication: ANXIETY
     Dosage: UNK, AS NEEDED
     Route: 048
  4. AMBIEN [Concomitant]
     Indication: INSOMNIA
     Dosage: UNK, AS NEEDED
     Route: 048
  5. MASCARA [Concomitant]
  6. EYELINER [Concomitant]

REACTIONS (4)
  - Ovarian cancer [Unknown]
  - Expired drug administered [Unknown]
  - Off label use [Unknown]
  - Off label use [Unknown]
